FAERS Safety Report 9773450 (Version 2)
Quarter: 2014Q2

REPORT INFORMATION
  Report Type: Spontaneous
  Country: US (occurrence: US)
  Receive Date: 20131219
  Receipt Date: 20140416
  Transmission Date: 20141212
  Serious: Yes (Hospitalization)
  Sender: FDA-Public Use
  Company Number: US-VERTEX PHARMACEUTICALS INC-2013-011842

PATIENT
  Sex: 0

DRUGS (3)
  1. INCIVEK [Suspect]
     Indication: CHRONIC HEPATITIS C
     Dosage: UNK
     Dates: start: 201105, end: 201112
  2. PEGYLATED INTERFERON ALFA-2A [Suspect]
     Indication: CHRONIC HEPATITIS C
  3. RIBAVIRIN [Suspect]
     Indication: CHRONIC HEPATITIS C
     Dosage: UNK

REACTIONS (4)
  - Investigation [Unknown]
  - Hepatitis C [Unknown]
  - Virologic failure [Unknown]
  - Off label use [Unknown]
